FAERS Safety Report 18602484 (Version 1)
Quarter: 2020Q4

REPORT INFORMATION
  Report Type: Spontaneous
  Country: DE (occurrence: DE)
  Receive Date: 20201210
  Receipt Date: 20201210
  Transmission Date: 20210114
  Serious: Yes (Other)
  Sender: FDA-Public Use
  Company Number: DE-JNJFOC-20201150517

PATIENT
  Age: 76 Year
  Sex: Female
  Weight: 66 kg

DRUGS (8)
  1. UPTRAVI [Suspect]
     Active Substance: SELEXIPAG
     Indication: PULMONARY HYPERTENSION
     Dosage: 200 UG, QD
     Route: 048
     Dates: start: 202008
  2. L-THYROXIN [Concomitant]
     Active Substance: LEVOTHYROXINE SODIUM
     Indication: PRODUCT USED FOR UNKNOWN INDICATION
     Dosage: MORE THAN 5 YEARS AGO
     Route: 065
  3. NEBIVOLOL. [Concomitant]
     Active Substance: NEBIVOLOL
     Indication: HYPERTENSION
     Dosage: 5 MG, QD (MORE THAN 3 YEARS AGO)
     Route: 048
  4. TORASEMID [Concomitant]
     Active Substance: TORSEMIDE
     Indication: PRODUCT USED FOR UNKNOWN INDICATION
     Dosage: 20 MG, QD (MORE THAN 3 YEARS AGO)
     Route: 048
  5. JAKAVI [Suspect]
     Active Substance: RUXOLITINIB
     Dosage: 30 MG, PER DAY
     Dates: start: 20191008, end: 20200924
  6. ALLOPURINOL. [Concomitant]
     Active Substance: ALLOPURINOL
     Indication: HYPERURICAEMIA
     Dosage: 150 MG, QD (MORE THAN 3 YEARS AGO)
     Route: 048
  7. OPSUMIT [Suspect]
     Active Substance: MACITENTAN
     Indication: PULMONARY HYPERTENSION
     Dosage: 10 MG, QD
     Route: 048
     Dates: start: 201910
  8. ADEMPAS [Suspect]
     Active Substance: RIOCIGUAT
     Indication: PULMONARY HYPERTENSION
     Dosage: 1.5 MG, QD
     Route: 048
     Dates: start: 201910

REACTIONS (9)
  - Aplasia [Recovering/Resolving]
  - Osteosclerosis [Recovering/Resolving]
  - Blood lactate dehydrogenase increased [Unknown]
  - Platelet count increased [Unknown]
  - Blood uric acid increased [Unknown]
  - Myelosuppression [Recovering/Resolving]
  - Bone marrow failure [Recovering/Resolving]
  - Gamma-glutamyltransferase increased [Unknown]
  - Haemoglobin decreased [Unknown]

NARRATIVE: CASE EVENT DATE: 20191114
